FAERS Safety Report 5772460-5 (Version None)
Quarter: 2008Q2

REPORT INFORMATION
  Report Type: 
  Country: None (occurrence: None)
  Receive Date: 20080613
  Receipt Date: 20080603
  Transmission Date: 20081010
  Serious: Yes (Death, Hospitalization)
  Sender: FDA-Public Use
  Company Number: BE-ROCHE-565357

PATIENT
  Age: 65 Year
  Sex: Female

DRUGS (6)
  1. BONIVA [Suspect]
     Indication: OSTEOPOROSIS
     Route: 048
     Dates: start: 20070801
  2. ACETAMINOPHEN [Suspect]
     Indication: DRUG USE FOR UNKNOWN INDICATION
     Route: 065
  3. MESALAMINE [Concomitant]
  4. SALAZOPYRINE [Concomitant]
  5. SULFAPYRIDINE [Concomitant]
  6. INSULIN [Concomitant]
     Indication: DIABETES MELLITUS

REACTIONS (3)
  - COMA [None]
  - HYPOGLYCAEMIA [None]
  - LABORATORY TEST INTERFERENCE [None]
